FAERS Safety Report 18722078 (Version 2)
Quarter: 2021Q1

REPORT INFORMATION
  Report Type: Spontaneous
  Country: US (occurrence: US)
  Receive Date: 20210111
  Receipt Date: 20210209
  Transmission Date: 20210419
  Serious: No
  Sender: FDA-Public Use
  Company Number: US-JNJFOC-20201249666

PATIENT
  Age: 68 Year
  Sex: Male
  Weight: 111.23 kg

DRUGS (1)
  1. ZYRTEC [Suspect]
     Active Substance: CETIRIZINE HYDROCHLORIDE
     Indication: MULTIPLE ALLERGIES
     Dosage: LAST DATE OF DRUG ADMINISTRATION: 23/DEC/2020
     Route: 048
     Dates: start: 20201204

REACTIONS (1)
  - Drug ineffective [Unknown]
